FAERS Safety Report 17160086 (Version 4)
Quarter: 2020Q3

REPORT INFORMATION
  Report Type: Spontaneous
  Country: US (occurrence: US)
  Receive Date: 20191216
  Receipt Date: 20200713
  Transmission Date: 20201102
  Serious: Yes (Other)
  Sender: FDA-Public Use
  Company Number: US-SA-2019SA346683

PATIENT

DRUGS (5)
  1. TAXOTERE [Suspect]
     Active Substance: DOCETAXEL
     Indication: BREAST CANCER FEMALE
     Dosage: 135 MG, Q3W
     Route: 042
     Dates: start: 20150831, end: 20150831
  2. NEOSAR [Concomitant]
     Active Substance: CYCLOPHOSPHAMIDE
     Indication: BREAST CANCER FEMALE
     Dosage: UNK
     Route: 065
  3. CYCLOPHOSPHAMIDE. [Concomitant]
     Active Substance: CYCLOPHOSPHAMIDE
     Dosage: UNK
     Dates: start: 20151123, end: 20151123
  4. TAXOTERE [Suspect]
     Active Substance: DOCETAXEL
     Dosage: 135 MG, Q3W
     Route: 042
     Dates: start: 20151123, end: 20151123
  5. CYCLOPHOSPHAMIDE. [Concomitant]
     Active Substance: CYCLOPHOSPHAMIDE
     Indication: BREAST CANCER FEMALE
     Dosage: UNK
     Dates: start: 20150831, end: 20150831

REACTIONS (6)
  - Alopecia [Recovering/Resolving]
  - Psychological trauma [Unknown]
  - Anxiety [Unknown]
  - Pain [Unknown]
  - Impaired quality of life [Unknown]
  - Emotional distress [Unknown]

NARRATIVE: CASE EVENT DATE: 20160701
